FAERS Safety Report 5931170-1 (Version None)
Quarter: 2008Q4

REPORT INFORMATION
  Report Type: 
  Country: None (occurrence: None)
  Receive Date: 20081027
  Receipt Date: 20081017
  Transmission Date: 20090506
  Serious: Yes (Hospitalization)
  Sender: FDA-Public Use
  Company Number: PHHY2008FR25073

PATIENT
  Sex: Female

DRUGS (2)
  1. TAREG [Suspect]
     Dosage: UNK
     Dates: end: 20080828
  2. VERAPAMIL [Concomitant]

REACTIONS (18)
  - AORTIC VALVE INCOMPETENCE [None]
  - AORTIC VALVE STENOSIS [None]
  - ARRHYTHMIA SUPRAVENTRICULAR [None]
  - ATRIAL HYPERTROPHY [None]
  - ATRIAL TACHYCARDIA [None]
  - BRADYCARDIA [None]
  - BRAIN NATRIURETIC PEPTIDE INCREASED [None]
  - CARDIAC FAILURE [None]
  - CARDIAC PACEMAKER INSERTION [None]
  - HYPERTENSION [None]
  - HYPOXIA [None]
  - MITRAL VALVE CALCIFICATION [None]
  - NODAL ARRHYTHMIA [None]
  - OEDEMA PERIPHERAL [None]
  - ORTHOPNOEA [None]
  - PULMONARY ARTERIAL PRESSURE [None]
  - PULMONARY OEDEMA [None]
  - SINUS ARRHYTHMIA [None]
